FAERS Safety Report 8809578 (Version 2)
Quarter: 2015Q2

REPORT INFORMATION
  Report Type: Report from Study
  Country: US (occurrence: US)
  Receive Date: 20120926
  Receipt Date: 20150630
  Transmission Date: 20150821
  Serious: Yes (Death)
  Sender: FDA-Public Use
  Company Number: US-ROCHE-1123000

PATIENT
  Sex: Female

DRUGS (12)
  1. ALOXI [Concomitant]
     Active Substance: PALONOSETRON HYDROCHLORIDE
     Route: 065
  2. XELODA [Concomitant]
     Active Substance: CAPECITABINE
     Route: 065
  3. ABRAXANE [Concomitant]
     Active Substance: PACLITAXEL
     Route: 065
  4. AVASTIN [Suspect]
     Active Substance: BEVACIZUMAB
     Indication: METASTASES TO LUNG
  5. NEULASTA [Concomitant]
     Active Substance: PEGFILGRASTIM
     Route: 065
  6. DECADRON [Concomitant]
     Active Substance: DEXAMETHASONE
     Route: 065
  7. GEMZAR [Concomitant]
     Active Substance: GEMCITABINE HYDROCHLORIDE
     Route: 065
  8. CARBOPLATIN. [Concomitant]
     Active Substance: CARBOPLATIN
     Route: 065
  9. ZOMETA [Concomitant]
     Active Substance: ZOLEDRONIC ACID
     Route: 065
  10. AVASTIN [Suspect]
     Active Substance: BEVACIZUMAB
     Indication: BREAST CANCER
     Route: 042
     Dates: start: 20070608
  11. AVASTIN [Suspect]
     Active Substance: BEVACIZUMAB
     Indication: METASTASES TO LIVER
  12. NEUMEGA [Concomitant]
     Active Substance: OPRELVEKIN

REACTIONS (6)
  - Nasopharyngitis [Unknown]
  - Off label use [Unknown]
  - Oral pain [Unknown]
  - Death [Fatal]
  - Dehydration [Unknown]
  - Insomnia [Unknown]
